FAERS Safety Report 8316840-2 (Version None)
Quarter: 2012Q2

REPORT INFORMATION
  Report Type: 
  Country: None (occurrence: None)
  Receive Date: 20120427
  Receipt Date: 20120418
  Transmission Date: 20120825
  Serious: Yes (Other)
  Sender: FDA-Public Use
  Company Number: PHEH2011US010883

PATIENT
  Sex: Male
  Weight: 70.748 kg

DRUGS (3)
  1. GLEEVEC [Suspect]
     Dosage: 400 MG, BID
     Route: 048
     Dates: start: 20090812
  2. GLEEVEC [Suspect]
     Indication: SOFT TISSUE NEOPLASM
     Dosage: 400 MG, BID
     Route: 048
     Dates: start: 20090812
  3. GLEEVEC [Suspect]
     Dosage: 1 DF, DAILY
     Route: 048

REACTIONS (4)
  - NAUSEA [None]
  - NEOPLASM [None]
  - DRUG INEFFECTIVE [None]
  - DIARRHOEA [None]
